FAERS Safety Report 8585042-7 (Version None)
Quarter: 2012Q3

REPORT INFORMATION
  Report Type: 
  Country: None (occurrence: None)
  Receive Date: 20120810
  Receipt Date: 20120731
  Transmission Date: 20120928
  Serious: Yes (Other)
  Sender: FDA-Public Use
  Company Number: BE-COVIDIEN/TYCO HEALTHCARE/MALLINCKRODT-T201202974

PATIENT
  Sex: Male

DRUGS (1)
  1. IODINE I-131 DIAGNOSTIC SOLUTION [Suspect]
     Indication: NODULE
     Dosage: 1480 MBQ, SINGLE
     Route: 048
     Dates: start: 20120516, end: 20120516

REACTIONS (3)
  - INCORRECT DOSE ADMINISTERED [None]
  - HYPOTHYROIDISM [None]
  - MEDICATION ERROR [None]
